FAERS Safety Report 8694801 (Version 4)
Quarter: 2013Q2

REPORT INFORMATION
  Report Type: Spontaneous
  Country: US (occurrence: US)
  Receive Date: 20120731
  Receipt Date: 20130531
  Transmission Date: 20140414
  Serious: Yes (Other)
  Sender: FDA-Public Use
  Company Number: US-ASTRAZENECA-2012SE52515

PATIENT
  Age: 57 Year
  Sex: Male
  Weight: 117.9 kg

DRUGS (29)
  1. SYMBICORT [Suspect]
     Indication: ASTHMA
     Dosage: 160/4.5 MCG ONE PUFF TWO TIMES A DAY
     Route: 055
     Dates: start: 2011
  2. SYMBICORT [Suspect]
     Indication: BRONCHITIS
     Dosage: 160/4.5 MCG ONE PUFF TWO TIMES A DAY
     Route: 055
     Dates: start: 2011
  3. SYMBICORT [Suspect]
     Indication: ASTHMA
     Dosage: 160/4.5 MCG ONE TO TWO PUFFS AS NEEDED
     Route: 055
  4. SYMBICORT [Suspect]
     Indication: BRONCHITIS
     Dosage: 160/4.5 MCG ONE TO TWO PUFFS AS NEEDED
     Route: 055
  5. SYMBICORT [Suspect]
     Indication: ASTHMA
     Dosage: 160/4.5 MCG, 9 PUFFS ADMINISTERED BECAUSE REQUIRED
     Route: 055
     Dates: start: 20130519, end: 20130519
  6. SYMBICORT [Suspect]
     Indication: BRONCHITIS
     Dosage: 160/4.5 MCG, 9 PUFFS ADMINISTERED BECAUSE REQUIRED
     Route: 055
     Dates: start: 20130519, end: 20130519
  7. SYMBICORT [Suspect]
     Indication: ASTHMA
     Dosage: 160/4.5 MCG, AS NEEDED
     Route: 055
  8. SYMBICORT [Suspect]
     Indication: BRONCHITIS
     Dosage: 160/4.5 MCG, AS NEEDED
     Route: 055
  9. NEXIUM [Suspect]
     Indication: ABDOMINAL PAIN UPPER
     Route: 048
  10. NEXIUM [Suspect]
     Indication: DYSPEPSIA
     Route: 048
  11. CRESTOR [Suspect]
     Indication: BLOOD CHOLESTEROL ABNORMAL
     Dosage: DAILY
     Route: 048
  12. ALLOPURINOL [Concomitant]
     Indication: BLOOD URIC ACID ABNORMAL
  13. AMBIEN [Concomitant]
     Indication: SLEEP DISORDER
  14. DICLOFENAC [Concomitant]
     Indication: ANTIINFLAMMATORY THERAPY
  15. DICLOFENAC [Concomitant]
     Indication: PAIN
  16. FUROSEMIDE [Concomitant]
     Indication: DIURETIC THERAPY
  17. HYDROCODONE [Concomitant]
     Indication: PAIN
  18. FISH OIL [Concomitant]
     Indication: CARDIAC DISORDER
  19. GLIPIZIDE [Concomitant]
     Indication: DIABETES MELLITUS
  20. METFORMIN [Concomitant]
     Indication: DIABETES MELLITUS
  21. LANTUS [Concomitant]
     Indication: DIABETES MELLITUS
  22. PLAVIX [Concomitant]
     Indication: ANTICOAGULANT THERAPY
  23. SOMA [Concomitant]
     Indication: MUSCLE RELAXANT THERAPY
  24. VITAMIN D [Concomitant]
     Indication: NASAL DISORDER
  25. VITAMIN D [Concomitant]
     Indication: CARDIAC DISORDER
  26. METOPROLOL [Concomitant]
     Indication: CARDIAC DISORDER
  27. DENOLOPRIL [Concomitant]
     Indication: CARDIAC DISORDER
  28. SINGULAIR [Concomitant]
     Indication: ASTHMA
  29. FIBRE LAXATIVE [Concomitant]
     Indication: LAXATIVE SUPPORTIVE CARE

REACTIONS (12)
  - Loss of consciousness [Unknown]
  - Wheezing [Unknown]
  - Asthma [Unknown]
  - Pulmonary congestion [Unknown]
  - Condition aggravated [Unknown]
  - Cough [Not Recovered/Not Resolved]
  - Oropharyngeal pain [Unknown]
  - Off label use [Unknown]
  - Circumstance or information capable of leading to medication error [Unknown]
  - Intentional drug misuse [Recovered/Resolved]
  - Drug dose omission [Unknown]
  - Drug ineffective [Recovered/Resolved]
